FAERS Safety Report 7580487-6 (Version None)
Quarter: 2011Q2

REPORT INFORMATION
  Report Type: 
  Country: None (occurrence: None)
  Receive Date: 20110629
  Receipt Date: 20110608
  Transmission Date: 20111010
  Serious: Yes (Hospitalization, Congenital Anomaly)
  Sender: FDA-Public Use
  Company Number: A0929744A

PATIENT
  Sex: Female

DRUGS (9)
  1. CLOMIPHENE CITRATE [Concomitant]
     Indication: INFERTILITY
     Route: 064
  2. FLOVENT [Concomitant]
     Indication: ASTHMA
     Route: 064
  3. FOLIC ACID [Concomitant]
     Route: 064
  4. EMETROL [Concomitant]
     Indication: NAUSEA
     Route: 064
  5. ALUPENT [Concomitant]
     Indication: ASTHMA
     Route: 064
  6. PAXIL [Suspect]
     Route: 064
  7. PHENERGAN HCL [Concomitant]
     Indication: NAUSEA
     Route: 064
  8. ALBUTEROL SULFATE AUTOHALER [Concomitant]
     Indication: ASTHMA
     Route: 064
  9. SEREVENT [Concomitant]
     Indication: ASTHMA
     Route: 064

REACTIONS (2)
  - CONGENITAL CYSTIC LUNG [None]
  - DRUG EXPOSURE DURING PREGNANCY [None]
